FAERS Safety Report 4502540-3 (Version None)
Quarter: 2004Q4

REPORT INFORMATION
  Report Type: 
  Country: None (occurrence: None)
  Receive Date: 20041110
  Receipt Date: 20041027
  Transmission Date: 20050328
  Serious: Yes (Death)
  Sender: FDA-Public Use
  Company Number: 2004-DE-05628GD

PATIENT
  Age: 2 Month

DRUGS (2)
  1. NEVIRAPINE (NEVIRAPINE) (NEVIRAPINE) [Suspect]
     Indication: HUMAN IMMUNODEFICIENCY VIRUS TRANSMISSION
     Dosage: 2 MG/KG
     Route: 048
  2. ZIDOVUDINE [Suspect]
     Indication: HUMAN IMMUNODEFICIENCY VIRUS TRANSMISSION
     Dosage: 2 MG/KG
     Route: 048

REACTIONS (3)
  - DIARRHOEA [None]
  - MATERNAL DRUGS AFFECTING FOETUS [None]
  - SEPTIC SHOCK [None]
